FAERS Safety Report 8474081 (Version 4)
Quarter: 2012Q4

REPORT INFORMATION
  Report Type: Report from Study
  Country: CA (occurrence: CA)
  Receive Date: 20120323
  Receipt Date: 20121231
  Transmission Date: 20130627
  Serious: Yes (Hospitalization, Other)
  Sender: FDA-Public Use
  Company Number: CA-ABBOTT-12P-028-0894978-00

PATIENT
  Sex: Female

DRUGS (2)
  1. HUMIRA 40 MG/ 0.8 ML PRE-FILLED SYRINGE [Suspect]
     Indication: RHEUMATOID ARTHRITIS
     Route: 058
     Dates: start: 20071206, end: 201203
  2. HUMIRA 40 MG/ 0.8 ML PRE-FILLED SYRINGE [Suspect]
     Dates: start: 20121211

REACTIONS (9)
  - Arthritis bacterial [Unknown]
  - Device dislocation [Unknown]
  - Clostridium difficile infection [Recovered/Resolved]
  - Infection [Recovered/Resolved]
  - Hearing impaired [Not Recovered/Not Resolved]
  - Wound infection [Recovered/Resolved]
  - Inflammation of wound [Recovered/Resolved]
  - Mobility decreased [Unknown]
  - Gait disturbance [Unknown]
